FAERS Safety Report 6940692-6 (Version None)
Quarter: 2010Q3

REPORT INFORMATION
  Report Type: 
  Country: None (occurrence: None)
  Receive Date: 20100825
  Receipt Date: 20100817
  Transmission Date: 20110219
  Serious: Yes (Hospitalization)
  Sender: FDA-Public Use
  Company Number: DE-ROCHE-718663

PATIENT
  Sex: Female
  Weight: 98 kg

DRUGS (9)
  1. BEVACIZUMAB [Suspect]
     Indication: BREAST CANCER
     Dosage: DOSE FORM: INFUSION. LAST DATE PRIOR TO SAE: 10 AUGUST 2010
     Route: 042
     Dates: start: 20100303
  2. DOCETAXEL [Suspect]
     Indication: BREAST CANCER
     Dosage: DOSE FORM: INFUSION. LAST DOSE PRIOR TO SAE: 10 AUGUST 2010.
     Route: 042
     Dates: start: 20100607
  3. CYCLOPHOSPHAMIDE [Suspect]
     Indication: BREAST CANCER
     Dosage: DOSE FORM: INFUSION. LAST DOSE PRIOR TO SAE: 05 MAY 2010
     Route: 042
     Dates: start: 20100303
  4. EPIRUBICIN [Suspect]
     Indication: BREAST CANCER
     Dosage: DOSE FORM: INFUSION. LAST DOSE PRIOR TO SAE: 05 MAY 2010
     Route: 042
     Dates: start: 20100303
  5. MORONAL [Concomitant]
     Dates: start: 20100725
  6. BISOGAMMA [Concomitant]
     Dates: start: 20100401
  7. IBUPROFEN TABLETS [Concomitant]
     Dates: start: 20100401
  8. NULYTELY [Concomitant]
     Dosage: TDD: 3 BH DIE
     Dates: start: 20100401
  9. MAALOXAN [Concomitant]
     Dosage: DRUG REPORTED: MALOXAAN.  TDD: 3BH DIE
     Dates: start: 20100401

REACTIONS (2)
  - MUCOSAL INFLAMMATION [None]
  - STOMATITIS [None]
